FAERS Safety Report 14443827 (Version 1)
Quarter: 2018Q1

REPORT INFORMATION
  Report Type: Spontaneous
  Country: US (occurrence: US)
  Receive Date: 20180125
  Receipt Date: 20180125
  Transmission Date: 20180509
  Serious: No
  Sender: FDA-Public Use
  Company Number: None

PATIENT
  Age: 78 Year
  Sex: Male

DRUGS (1)
  1. REPATHA [Suspect]
     Active Substance: EVOLOCUMAB

REACTIONS (6)
  - Influenza [None]
  - Pharyngeal disorder [None]
  - Throat irritation [None]
  - Pain in extremity [None]
  - Cough [None]
  - Blood pressure increased [None]

NARRATIVE: CASE EVENT DATE: 20180125
